FAERS Safety Report 16579560 (Version 2)
Quarter: 2019Q3

REPORT INFORMATION
  Report Type: Spontaneous
  Country: US (occurrence: US)
  Receive Date: 20190716
  Receipt Date: 20190806
  Transmission Date: 20191004
  Serious: Yes (Hospitalization, Other)
  Sender: FDA-Public Use
  Company Number: US-FARMAPROD-201907-1044

PATIENT
  Age: 73 Year
  Sex: Female

DRUGS (2)
  1. OXERVATE [Suspect]
     Active Substance: CENEGERMIN-BKBJ
     Indication: NEUROTROPHIC KERATOPATHY
     Route: 047
     Dates: start: 201906
  2. OTC TEARS [Concomitant]
     Indication: EYE LUBRICATION THERAPY
     Route: 061

REACTIONS (4)
  - Eye discharge [Unknown]
  - Hypertension [Recovering/Resolving]
  - Eye pain [Recovered/Resolved]
  - Diplopia [Unknown]

NARRATIVE: CASE EVENT DATE: 20190702
